FAERS Safety Report 12238244 (Version 1)
Quarter: 2016Q2

REPORT INFORMATION
  Report Type: Spontaneous
  Country: US (occurrence: None)
  Receive Date: 20160404
  Receipt Date: 20160404
  Transmission Date: 20160815
  Serious: Yes (Death)
  Sender: FDA-Public Use
  Company Number: None

PATIENT
  Age: 68 Year
  Sex: Male
  Weight: 104 kg

DRUGS (2)
  1. WARFARIN, 10MG [Suspect]
     Active Substance: WARFARIN
     Indication: AORTIC VALVE REPLACEMENT
     Route: 048
     Dates: start: 20081106, end: 20160324
  2. WARFARIN [Concomitant]
     Active Substance: WARFARIN

REACTIONS (5)
  - International normalised ratio increased [None]
  - Fall [None]
  - Haemorrhagic cerebral infarction [None]
  - Blood pressure systolic increased [None]
  - Diarrhoea [None]

NARRATIVE: CASE EVENT DATE: 20160324
